FAERS Safety Report 4863208-7 (Version None)
Quarter: 2005Q4

REPORT INFORMATION
  Report Type: 
  Country: None (occurrence: None)
  Receive Date: 20051219
  Receipt Date: 20051108
  Transmission Date: 20060501
  Serious: Yes (Death)
  Sender: FDA-Public Use
  Company Number: MK200512-0237-1

PATIENT
  Age: 23 Year

DRUGS (3)
  1. TRAMADOL HCL [Suspect]
     Dosage: PO
     Route: 048
     Dates: start: 20040101
  2. MIRTAZAPINE [Suspect]
  3. CLONAZEPAM [Suspect]

REACTIONS (4)
  - CARDIAC ARREST [None]
  - COMPLETED SUICIDE [None]
  - INTENTIONAL OVERDOSE [None]
  - RESPIRATORY ARREST [None]
